FAERS Safety Report 24393783 (Version 2)
Quarter: 2024Q4

REPORT INFORMATION
  Report Type: Spontaneous
  Country: JP (occurrence: JP)
  Receive Date: 20241003
  Receipt Date: 20241115
  Transmission Date: 20250114
  Serious: Yes (Death)
  Sender: CARA THERAPEUTICS
  Company Number: JP-CARA THERAPEUTICS, INC.-2024-00265-JP

PATIENT
  Age: 88 Year
  Sex: Male
  Weight: 53.5 kg

DRUGS (8)
  1. KORSUVA [Suspect]
     Active Substance: DIFELIKEFALIN ACETATE
     Indication: Pruritus
     Dosage: 25 ?G/ (25 ?G/     )
     Route: 042
     Dates: start: 20240209, end: 20240411
  2. KORSUVA [Suspect]
     Active Substance: DIFELIKEFALIN ACETATE
     Dosage: 17.5 ?G/ (17.5 ?G/    )
     Route: 042
     Dates: start: 20240411
  3. DARBEPOETIN ALFA [Concomitant]
     Active Substance: DARBEPOETIN ALFA
  4. LEVOCARNITINE HYDROCHLORIDE [Concomitant]
     Active Substance: LEVOCARNITINE HYDROCHLORIDE
  5. LOKELMA [Concomitant]
     Active Substance: SODIUM ZIRCONIUM CYCLOSILICATE
  6. FOSRENOL [Concomitant]
     Active Substance: LANTHANUM CARBONATE
  7. CALTAN [Concomitant]
     Active Substance: CALCIUM CARBONATE
  8. ROCALTROL [Concomitant]
     Active Substance: CALCITRIOL

REACTIONS (3)
  - Death [Fatal]
  - Blood pressure increased [Recovered/Resolved]
  - Off label use [Unknown]

NARRATIVE: CASE EVENT DATE: 20240321
